FAERS Safety Report 7206215-1 (Version None)
Quarter: 2011Q1

REPORT INFORMATION
  Report Type: 
  Country: None (occurrence: None)
  Receive Date: 20110103
  Receipt Date: 20101221
  Transmission Date: 20110831
  Serious: Yes (Other)
  Sender: FDA-Public Use
  Company Number: US-ELI_LILLY_AND_COMPANY-US201003003805

PATIENT
  Sex: Female

DRUGS (1)
  1. FORTEO [Suspect]
     Indication: OSTEOPOROSIS
     Dosage: 20 UG, DAILY (1/D)
     Dates: start: 20090701

REACTIONS (12)
  - VASCULAR INSUFFICIENCY [None]
  - INJECTION SITE ERYTHEMA [None]
  - COMPUTERISED TOMOGRAM ABNORMAL [None]
  - WEGENER'S GRANULOMATOSIS [None]
  - INJECTION SITE URTICARIA [None]
  - INJECTION SITE HAEMATOMA [None]
  - CATARACT [None]
  - MOVEMENT DISORDER [None]
  - INJECTION SITE HAEMORRHAGE [None]
  - ARTHROPATHY [None]
  - ARTHRALGIA [None]
  - PAIN [None]
